FAERS Safety Report 14841205 (Version 1)
Quarter: 2018Q2

REPORT INFORMATION
  Report Type: Spontaneous
  Country: US (occurrence: US)
  Receive Date: 20180503
  Receipt Date: 20180503
  Transmission Date: 20180711
  Serious: No
  Sender: FDA-Public Use
  Company Number: US-BAYER-2018-077620

PATIENT
  Age: 65 Year
  Sex: Male
  Weight: 69.98 kg

DRUGS (3)
  1. CLARITIN [Suspect]
     Active Substance: LORATADINE
     Indication: URTICARIA
     Dosage: 1 DF, UNK
     Route: 048
     Dates: start: 20180418, end: 20180418
  2. SIMVASTATIN. [Concomitant]
     Active Substance: SIMVASTATIN
     Dosage: UNK
  3. CLARITIN [Suspect]
     Active Substance: LORATADINE
     Indication: PRURITUS GENERALISED

REACTIONS (6)
  - Feeling cold [Recovered/Resolved]
  - Drug administration error [Unknown]
  - Initial insomnia [Unknown]
  - Off label use [Unknown]
  - Therapeutic product effective for unapproved indication [Unknown]
  - Chills [Recovered/Resolved]

NARRATIVE: CASE EVENT DATE: 20180418
